FAERS Safety Report 25541998 (Version 1)
Quarter: 2025Q3

REPORT INFORMATION
  Report Type: Spontaneous
  Country: EU (occurrence: EU)
  Receive Date: 20250711
  Receipt Date: 20250711
  Transmission Date: 20251021
  Serious: Yes (Other)
  Sender: CELLTRION
  Company Number: EU-CELLTRION INC.-2025FR021853

PATIENT

DRUGS (6)
  1. RITUXIMAB [Suspect]
     Active Substance: RITUXIMAB
     Indication: Rheumatoid arthritis
     Route: 042
     Dates: start: 20211125, end: 20211125
  2. RITUXIMAB [Suspect]
     Active Substance: RITUXIMAB
     Dates: start: 202112, end: 202112
  3. RITUXIMAB [Suspect]
     Active Substance: RITUXIMAB
     Dates: start: 202206, end: 202206
  4. RITUXIMAB [Suspect]
     Active Substance: RITUXIMAB
     Dates: start: 202206, end: 202206
  5. RITUXIMAB [Suspect]
     Active Substance: RITUXIMAB
     Dates: start: 20221116, end: 20221116
  6. RITUXIMAB [Suspect]
     Active Substance: RITUXIMAB
     Dates: start: 20221130, end: 20221130

REACTIONS (7)
  - Anaphylactic reaction [Recovered/Resolved]
  - Nasal obstruction [Unknown]
  - Condition aggravated [Unknown]
  - Rhinitis allergic [Recovering/Resolving]
  - Asthenia [Unknown]
  - Sneezing [Unknown]
  - Throat irritation [Recovering/Resolving]

NARRATIVE: CASE EVENT DATE: 20211125
